FAERS Safety Report 5117957-6 (Version None)
Quarter: 2006Q3

REPORT INFORMATION
  Report Type: 
  Country: None (occurrence: None)
  Receive Date: 20060926
  Receipt Date: 20060914
  Transmission Date: 20061208
  Serious: Yes (Other)
  Sender: FDA-Public Use
  Company Number: 2006BH012205

PATIENT
  Age: 63 Year
  Sex: Male

DRUGS (2)
  1. EXTRANEAL                  (ICODEXTRIN 7.5%) [Suspect]
     Indication: PERITONEAL DIALYSIS
     Dosage: 2 L;EVERY DAY;IP
     Route: 033
     Dates: start: 20050801, end: 20060801
  2. PHYSIONEAL 40 [Concomitant]

REACTIONS (5)
  - ABDOMINAL PAIN [None]
  - CANDIDIASIS [None]
  - CATHETER SITE INFECTION [None]
  - STAPHYLOCOCCAL INFECTION [None]
  - URINE ABNORMALITY [None]
